FAERS Safety Report 15974551 (Version 2)
Quarter: 2019Q1

REPORT INFORMATION
  Report Type: Report from Study
  Country: CA (occurrence: CA)
  Receive Date: 20190218
  Receipt Date: 20190306
  Transmission Date: 20190418
  Serious: Yes (Other)
  Sender: FDA-Public Use
  Company Number: CA-ROCHE-2165426

PATIENT
  Age: 33 Year
  Sex: Female

DRUGS (4)
  1. NORMAL SALINE [Concomitant]
     Active Substance: SODIUM CHLORIDE
     Route: 065
     Dates: start: 20180720
  2. OCREVUS [Suspect]
     Active Substance: OCRELIZUMAB
     Indication: RELAPSING-REMITTING MULTIPLE SCLEROSIS
     Dosage: 300 MG DAY 0 AND DAY14, THEN 600MG EVERY 6 MONTHS IN 250 ML NS (ALSO RECEIVED ON 03/AUG/2018)
     Route: 042
     Dates: start: 20180720
  3. BENADRYL [Suspect]
     Active Substance: DIPHENHYDRAMINE HYDROCHLORIDE
     Indication: PRODUCT USED FOR UNKNOWN INDICATION
     Route: 065
  4. CIPRALEX [Concomitant]
     Active Substance: ESCITALOPRAM OXALATE
     Indication: DEPRESSION

REACTIONS (10)
  - Infusion related reaction [Recovered/Resolved]
  - Diarrhoea [Recovered/Resolved]
  - Dyspnoea exertional [Recovered/Resolved]
  - Psoriasis [Unknown]
  - Abdominal discomfort [Not Recovered/Not Resolved]
  - Fatigue [Recovered/Resolved]
  - Headache [Unknown]
  - Infusion related reaction [Recovered/Resolved]
  - Nasopharyngitis [Recovered/Resolved]
  - Chest pain [Recovered/Resolved]

NARRATIVE: CASE EVENT DATE: 20180720
